FAERS Safety Report 10684675 (Version 2)
Quarter: 2015Q1

REPORT INFORMATION
  Report Type: Spontaneous
  Country: AT (occurrence: None)
  Receive Date: 20141229
  Receipt Date: 20150316
  Transmission Date: 20150720
  Serious: Yes (Other)
  Sender: FDA-Public Use
  Company Number: 2014-21002

PATIENT
  Age: 85 Year
  Sex: Male

DRUGS (1)
  1. EYLEA [Suspect]
     Active Substance: AFLIBERCEPT
     Indication: PRODUCT USED FOR UNKNOWN INDICATION
     Dosage: UNK
     Dates: start: 20141209, end: 20141209

REACTIONS (4)
  - Off label use [None]
  - Vitreous haemorrhage [None]
  - Vitritis [None]
  - Vitreous opacities [None]

NARRATIVE: CASE EVENT DATE: 201412
